FAERS Safety Report 9099922 (Version 1)
Quarter: 2013Q1

REPORT INFORMATION
  Report Type: Spontaneous
  Country: US (occurrence: US)
  Receive Date: 20130213
  Receipt Date: 20130213
  Transmission Date: 20140127
  Serious: No
  Sender: FDA-Public Use
  Company Number: US-VERTEX PHARMACEUTICALS INC.-2013-001939

PATIENT
  Age: 48 Year
  Sex: Female
  Weight: 83 kg

DRUGS (3)
  1. INCIVEK [Suspect]
     Indication: HEPATITIS C
     Dosage: 750 MG, TID
     Route: 048
     Dates: start: 20130105, end: 20130120
  2. RIBAVIRIN [Suspect]
     Indication: HEPATITIS C
     Dosage: 600MG IN A.M./ 400 MG IN P.M.
     Route: 048
     Dates: start: 20130105, end: 20130120
  3. PEGASYS [Suspect]
     Indication: HEPATITIS C
     Dosage: 180 ?G, QW
     Route: 058
     Dates: start: 20130105, end: 20130120

REACTIONS (1)
  - Adverse drug reaction [Unknown]
